FAERS Safety Report 7895000-3 (Version None)
Quarter: 2011Q4

REPORT INFORMATION
  Report Type: 
  Country: None (occurrence: None)
  Receive Date: 20111106
  Receipt Date: 20110822
  Transmission Date: 20120403
  Serious: No
  Sender: FDA-Public Use
  Company Number: US-AMGEN-USASP2011042757

PATIENT
  Age: 60 Year
  Sex: Female

DRUGS (3)
  1. ENBREL [Suspect]
     Indication: OSTEOARTHRITIS
  2. ENBREL [Suspect]
     Indication: FIBROMYALGIA
  3. ENBREL [Suspect]
     Indication: RHEUMATOID ARTHRITIS
     Dosage: 50 MG, QWK
     Dates: start: 20110518

REACTIONS (10)
  - DYSPHONIA [None]
  - RHEUMATOID ARTHRITIS [None]
  - INJECTION SITE INFLAMMATION [None]
  - LACRIMATION INCREASED [None]
  - INJECTION SITE SWELLING [None]
  - INJECTION SITE DISCOLOURATION [None]
  - INJECTION SITE PRURITUS [None]
  - HEADACHE [None]
  - INJECTION SITE ERYTHEMA [None]
  - OCULAR HYPERAEMIA [None]
